FAERS Safety Report 12969271 (Version 1)
Quarter: 2016Q4

REPORT INFORMATION
  Report Type: Not Available
  Country: None (occurrence: US)
  Receive Date: 20161123
  Receipt Date: 20161123
  Transmission Date: 20170207
  Serious: Yes (Other)
  Sender: FDA-Public Use
  Company Number: US-AKORN-43799

PATIENT

DRUGS (1)
  1. ADENOSINE INJECTION, USP. [Suspect]
     Active Substance: ADENOSINE

REACTIONS (2)
  - Product substitution issue [None]
  - Drug ineffective [None]
